FAERS Safety Report 8007469-4 (Version None)
Quarter: 2011Q4

REPORT INFORMATION
  Report Type: 
  Country: None (occurrence: None)
  Receive Date: 20111227
  Receipt Date: 20111214
  Transmission Date: 20120403
  Serious: Yes (Hospitalization, Other)
  Sender: FDA-Public Use
  Company Number: CH-MPIJNJ-2011-05968

PATIENT

DRUGS (8)
  1. DAFALGAN                           /00020001/ [Concomitant]
  2. MOVICOL                            /01053601/ [Concomitant]
     Route: 065
  3. NEXIUM [Concomitant]
     Route: 065
  4. TRAMAL                             /00599201/ [Concomitant]
     Route: 065
  5. POTASSIUM [Concomitant]
     Route: 065
  6. IRBESARTAN AND HYDROCHLOROTHIAZIDE [Concomitant]
     Route: 065
  7. FOLIC ACID [Concomitant]
     Route: 065
  8. VELCADE [Suspect]
     Indication: PRODUCT USED FOR UNKNOWN INDICATION
     Dosage: 2.5 MG, UNK
     Dates: start: 20111029, end: 20111104

REACTIONS (3)
  - RESPIRATORY FAILURE [None]
  - DYSPNOEA [None]
  - LUNG INFILTRATION [None]
